FAERS Safety Report 4685167-2 (Version None)
Quarter: 2005Q2

REPORT INFORMATION
  Report Type: 
  Country: None (occurrence: None)
  Receive Date: 20050608
  Receipt Date: 20050602
  Transmission Date: 20051028
  Serious: Yes (Hospitalization)
  Sender: FDA-Public Use
  Company Number: 200515077GDDC

PATIENT
  Age: 68 Year
  Sex: Male

DRUGS (6)
  1. LASIX [Suspect]
     Indication: ESSENTIAL HYPERTENSION
     Dates: start: 19930501
  2. AMIODARONE HYDROCHLORIDE [Suspect]
     Indication: ARRHYTHMIA
     Dosage: DOSE: 1.0 DOSE UNSPECIFIED
     Dates: start: 19930501, end: 19950926
  3. FLUTAMIDE [Suspect]
     Indication: PROSTATE CANCER
     Dates: start: 19950101
  4. ZOLADEX [Suspect]
     Indication: PROSTATE CANCER
     Dates: start: 19950101, end: 19950728
  5. ENALAPRIL MALEATE [Suspect]
     Indication: ESSENTIAL HYPERTENSION
     Dates: start: 19930501
  6. MINIPRESS [Suspect]
     Indication: ESSENTIAL HYPERTENSION
     Dates: start: 19940801, end: 19951120

REACTIONS (9)
  - ASTHENIA [None]
  - COUGH [None]
  - DYSPNOEA [None]
  - HYPOAESTHESIA [None]
  - HYPOXIA [None]
  - PAIN [None]
  - PAIN IN EXTREMITY [None]
  - PULMONARY FIBROSIS [None]
  - SKIN DISCOLOURATION [None]
